FAERS Safety Report 7455182-4 (Version None)
Quarter: 2011Q2

REPORT INFORMATION
  Report Type: 
  Country: None (occurrence: None)
  Receive Date: 20110503
  Receipt Date: 20110421
  Transmission Date: 20111010
  Serious: Yes (Hospitalization)
  Sender: FDA-Public Use
  Company Number: PHHY2011MX34610

PATIENT
  Age: 67 Year
  Sex: Female

DRUGS (3)
  1. ZELMAC [Suspect]
     Indication: IRRITABLE BOWEL SYNDROME
     Dosage: 0.5 TABLET (6 MG)
     Route: 048
     Dates: start: 20090101, end: 20110401
  2. METAMUCIL-2 [Concomitant]
  3. SENNOCOT [Concomitant]

REACTIONS (3)
  - GASTROINTESTINAL NECROSIS [None]
  - DIVERTICULAR PERFORATION [None]
  - INCORRECT DOSE ADMINISTERED [None]
